FAERS Safety Report 7086610-4 (Version None)
Quarter: 2010Q4

REPORT INFORMATION
  Report Type: 
  Country: None (occurrence: None)
  Receive Date: 20101105
  Receipt Date: 20101027
  Transmission Date: 20110411
  Serious: Yes (Other)
  Sender: FDA-Public Use
  Company Number: JP-ABBOTT-10P-087-0682745-00

PATIENT
  Sex: Female

DRUGS (26)
  1. AKINETON [Suspect]
     Indication: PARKINSONISM
     Dosage: 3 MG/DAY
     Route: 048
     Dates: start: 20100830, end: 20100902
  2. BLONANSERIN [Suspect]
     Indication: SCHIZOPHRENIA
     Dosage: 16 MG/DAY
     Route: 048
     Dates: start: 20100830, end: 20100901
  3. BLONANSERIN [Concomitant]
     Dosage: 4 MG/DAY
     Route: 048
     Dates: start: 20100625, end: 20100702
  4. BLONANSERIN [Concomitant]
     Dosage: 8 MG/DAY
     Route: 048
     Dates: start: 20100702, end: 20100709
  5. BLONANSERIN [Concomitant]
     Dosage: 16 MG/DAY
     Route: 048
     Dates: start: 20100709, end: 20100716
  6. BLONANSERIN [Concomitant]
     Dosage: 24 MG/DAY
     Route: 048
     Dates: start: 20100716, end: 20100830
  7. BLONANSERIN [Concomitant]
     Dosage: 8 MG/DAY
     Route: 048
     Dates: start: 20100901, end: 20100903
  8. BLONANSERIN [Concomitant]
     Dosage: 4 MG/DAY
     Route: 048
     Dates: start: 20100903, end: 20100915
  9. RISPERIDONE [Concomitant]
     Indication: SCHIZOPHRENIA
     Dosage: 2 MG/DAY
     Route: 048
     Dates: start: 20100524, end: 20100528
  10. ZYPREXA [Concomitant]
     Indication: SCHIZOPHRENIA
     Dosage: 15 MG/DAY
     Route: 048
     Dates: start: 20100525, end: 20100528
  11. ZYPREXA [Concomitant]
     Dosage: 20 MG/DAY
     Route: 048
     Dates: start: 20100528, end: 20100722
  12. ZYPREXA [Concomitant]
     Dosage: 10 MG/DAY
     Route: 048
     Dates: start: 20100723, end: 20100730
  13. ZYPREXA [Concomitant]
     Dosage: 5 MG/DAY
     Route: 048
     Dates: start: 20100730, end: 20100806
  14. DEPAS [Concomitant]
     Indication: SCHIZOPHRENIA
     Dosage: 0.5 MG/DAY
     Route: 048
     Dates: start: 20100528, end: 20100722
  15. BENZALIN [Concomitant]
     Indication: SCHIZOPHRENIA
     Dosage: 5 MG/DAY
     Route: 048
     Dates: start: 20100528, end: 20100604
  16. BENZALIN [Concomitant]
     Dosage: 10 MG/DAY
     Route: 048
     Dates: start: 20100604
  17. LOSIZOPILON [Concomitant]
     Indication: SCHIZOPHRENIA
     Dosage: 75 MG/DAY
     Route: 048
     Dates: start: 20100531, end: 20100604
  18. LOSIZOPILON [Concomitant]
     Dosage: 150 MG/DAY
     Route: 048
     Dates: start: 20100604, end: 20100730
  19. LOSIZOPILON [Concomitant]
     Dosage: 75 MG/DAY
     Route: 048
     Dates: start: 20100730, end: 20100805
  20. LOSIZOPILON [Concomitant]
     Dosage: 25 MG/DAY
     Route: 048
     Dates: start: 20100806
  21. WYPAX [Concomitant]
     Indication: SCHIZOPHRENIA
     Dosage: 1.5 MG/DAY
     Route: 048
     Dates: start: 20100531
  22. MAGNESIUM OXIDE [Concomitant]
     Indication: CONSTIPATION
     Dosage: 3 GRAM/DAY
     Route: 048
     Dates: start: 20100618
  23. SENNA LEAF_SENNA POD [Concomitant]
     Indication: CONSTIPATION
     Dosage: 1 GRAM/DAY
     Route: 048
     Dates: start: 20100618
  24. DIMETHICONE [Concomitant]
     Indication: CONSTIPATION
     Dosage: 120 MG/DAY
     Route: 048
     Dates: start: 20100623
  25. PANTOSIN [Concomitant]
     Indication: CONSTIPATION
     Dosage: 300 MG/DAY
     Route: 048
     Dates: start: 20100623
  26. LENDORMIN [Concomitant]
     Indication: SCHIZOPHRENIA
     Dosage: 0.25 MG/DAY
     Route: 048
     Dates: start: 20100813

REACTIONS (1)
  - URINARY RETENTION [None]
